FAERS Safety Report 16945397 (Version 1)
Quarter: 2019Q4

REPORT INFORMATION
  Report Type: Spontaneous
  Country: IT (occurrence: IT)
  Receive Date: 20191022
  Receipt Date: 20191022
  Transmission Date: 20200122
  Serious: Yes (Other)
  Sender: FDA-Public Use
  Company Number: IT-TEVA-2019-IT-1125235

PATIENT
  Age: 40 Year
  Sex: Male

DRUGS (4)
  1. ARIPIPRAZOLE. [Suspect]
     Active Substance: ARIPIPRAZOLE
     Dosage: 20 MILLIGRAM DAILY;
     Route: 065
  2. ARIPIPRAZOLE. [Suspect]
     Active Substance: ARIPIPRAZOLE
     Indication: HYPOMANIA
     Dosage: 5 MILLIGRAM DAILY;
     Route: 065
     Dates: start: 201709
  3. QUETIAPINE. [Concomitant]
     Active Substance: QUETIAPINE
     Indication: HYPOMANIA
     Dosage: DOSE: 300 (UNIT NOT STATED)
     Route: 065
  4. VALPROIC ACID. [Concomitant]
     Active Substance: VALPROIC ACID
     Indication: HYPOMANIA
     Dosage: DOSE 1500 (UNIT NOT STATED)
     Route: 065
     Dates: start: 201709

REACTIONS (1)
  - Gambling disorder [Recovered/Resolved]
